FAERS Safety Report 24030354 (Version 1)
Quarter: 2024Q2

REPORT INFORMATION
  Report Type: Other
  Country: IL (occurrence: IL)
  Receive Date: 20240628
  Receipt Date: 20240628
  Transmission Date: 20240716
  Serious: Yes (Death, Other)
  Sender: FDA-Public Use
  Company Number: IL-GE HEALTHCARE-2024CSU006942

PATIENT
  Age: 79 Year
  Sex: Female

DRUGS (1)
  1. OMNIPAQUE [Suspect]
     Active Substance: IOHEXOL
     Indication: Computerised tomogram
     Dosage: UNK, TOTAL
     Route: 065

REACTIONS (6)
  - Pulse absent [Fatal]
  - Dysarthria [Unknown]
  - Feeling abnormal [Unknown]
  - Pallor [Unknown]
  - Loss of consciousness [Unknown]
  - Hyperhidrosis [Unknown]
